FAERS Safety Report 18889292 (Version 1)
Quarter: 2021Q1

REPORT INFORMATION
  Report Type: Spontaneous
  Country: US (occurrence: US)
  Receive Date: 20210212
  Receipt Date: 20210212
  Transmission Date: 20210420
  Serious: Yes (Other)
  Sender: FDA-Public Use
  Company Number: US-ROCHE-2764089

PATIENT
  Sex: Female

DRUGS (8)
  1. TUKYSA [Suspect]
     Active Substance: TUCATINIB
     Indication: BREAST CANCER FEMALE
     Route: 065
  2. CAPECITABINE. [Suspect]
     Active Substance: CAPECITABINE
     Indication: PRODUCT USED FOR UNKNOWN INDICATION
     Route: 048
     Dates: start: 20200910
  3. XGEVA [Concomitant]
     Active Substance: DENOSUMAB
  4. CAPECITABINE. [Suspect]
     Active Substance: CAPECITABINE
     Route: 048
  5. TUKYSA [Suspect]
     Active Substance: TUCATINIB
     Route: 065
  6. TUKYSA [Suspect]
     Active Substance: TUCATINIB
     Route: 065
  7. TUKYSA [Suspect]
     Active Substance: TUCATINIB
     Route: 065
  8. TUKYSA [Suspect]
     Active Substance: TUCATINIB
     Route: 065

REACTIONS (11)
  - Neuropathy peripheral [Unknown]
  - Skin discolouration [Not Recovered/Not Resolved]
  - Vomiting [Unknown]
  - Metastases to bone [Unknown]
  - Nausea [Unknown]
  - Platelet count decreased [Unknown]
  - Pigmentation disorder [Not Recovered/Not Resolved]
  - Muscle spasms [Unknown]
  - Diarrhoea [Unknown]
  - Dry mouth [Unknown]
  - Skin exfoliation [Not Recovered/Not Resolved]
